FAERS Safety Report 4682349-0 (Version None)
Quarter: 2005Q2

REPORT INFORMATION
  Report Type: 
  Country: None (occurrence: None)
  Receive Date: 20050606
  Receipt Date: 20050531
  Transmission Date: 20051028
  Serious: Yes (Other)
  Sender: FDA-Public Use
  Company Number: 200511588JP

PATIENT
  Age: 50 Year
  Sex: Female
  Weight: 46.6 kg

DRUGS (3)
  1. ARAVA [Suspect]
     Indication: RHEUMATOID ARTHRITIS
     Route: 048
     Dates: start: 20031028, end: 20050516
  2. KELNAC [Concomitant]
  3. PREDONINE [Concomitant]

REACTIONS (1)
  - LIVER FUNCTION TEST ABNORMAL [None]
